FAERS Safety Report 6167625-7 (Version None)
Quarter: 2009Q2

REPORT INFORMATION
  Report Type: 
  Country: None (occurrence: None)
  Receive Date: 20090424
  Receipt Date: 20090421
  Transmission Date: 20091009
  Serious: Yes (Hospitalization)
  Sender: FDA-Public Use
  Company Number: JP-ABBOTT-08P-087-0490069-00

PATIENT
  Sex: Male
  Weight: 65 kg

DRUGS (13)
  1. HUMIRA [Suspect]
     Indication: RHEUMATOID ARTHRITIS
     Route: 058
     Dates: start: 20080924, end: 20081105
  2. BUCILLAMINE [Concomitant]
     Indication: RHEUMATOID ARTHRITIS
     Route: 048
  3. BUCILLAMINE [Concomitant]
     Dates: end: 20081105
  4. STEROID [Concomitant]
     Indication: RHEUMATOID ARTHRITIS
     Route: 048
     Dates: start: 20071213
  5. EXTRACT OF INFLAMMATORY RABBIT SKIN INOCULATED BY VACCINIA VIRUS [Concomitant]
     Indication: NEURALGIA
     Route: 058
     Dates: start: 20080417
  6. EXTRACT OF INFLAMMATORY RABBIT SKIN INOCULATED BY VACCINIA VIRUS [Concomitant]
     Indication: RHEUMATOID ARTHRITIS
     Dates: end: 20081105
  7. NIZATIDINE [Concomitant]
     Indication: GASTRITIS PROPHYLAXIS
     Route: 048
     Dates: start: 20080501
  8. NIZATIDINE [Concomitant]
     Dates: end: 20081105
  9. PRONASE [Concomitant]
     Indication: ANTIINFLAMMATORY THERAPY
     Route: 048
     Dates: start: 20080501
  10. PRONASE [Concomitant]
     Indication: RHEUMATOID ARTHRITIS
     Dates: end: 20081105
  11. INDOMETACIN FARNESIL [Concomitant]
     Indication: RHEUMATOID ARTHRITIS
     Route: 048
     Dates: start: 20080522
  12. INDOMETACIN FARNESIL [Concomitant]
     Dates: end: 20081105
  13. PREDNISOLONE [Concomitant]
     Indication: RHEUMATOID ARTHRITIS
     Route: 048
     Dates: end: 20081105

REACTIONS (1)
  - DYSPNOEA [None]
